FAERS Safety Report 21385644 (Version 2)
Quarter: 2022Q3

REPORT INFORMATION
  Report Type: Report from Study
  Country: US (occurrence: US)
  Receive Date: 20220928
  Receipt Date: 20220929
  Transmission Date: 20221026
  Serious: Yes (Hospitalization, Other)
  Sender: FDA-Public Use
  Company Number: US-BRISTOL-MYERS SQUIBB COMPANY-2022-112183

PATIENT
  Age: 38 Year
  Sex: Female
  Weight: 72.3 kg

DRUGS (5)
  1. IPILIMUMAB [Suspect]
     Active Substance: IPILIMUMAB
     Indication: Liposarcoma
     Route: 042
     Dates: start: 20220818, end: 20220908
  2. NIVOLUMAB [Suspect]
     Active Substance: NIVOLUMAB
     Indication: Liposarcoma
     Route: 042
     Dates: start: 20220818, end: 20220908
  3. CABOZANTINIB [Suspect]
     Active Substance: CABOZANTINIB
     Indication: Liposarcoma
     Route: 048
     Dates: start: 20220818, end: 20220925
  4. VITAMINS NOS [Concomitant]
     Active Substance: VITAMINS
     Indication: Product used for unknown indication
  5. PROCHLORPERAZINE [Concomitant]
     Active Substance: PROCHLORPERAZINE
     Indication: Product used for unknown indication

REACTIONS (3)
  - Drug-induced liver injury [Unknown]
  - Hepatic failure [Unknown]
  - Portal vein thrombosis [Unknown]

NARRATIVE: CASE EVENT DATE: 20220925
